FAERS Safety Report 24366441 (Version 1)
Quarter: 2024Q3

REPORT INFORMATION
  Report Type: Spontaneous
  Country: US (occurrence: None)
  Receive Date: 20240925
  Receipt Date: 20240925
  Transmission Date: 20241017
  Serious: Yes (unspecified)
  Sender: Public
  Company Number: None

PATIENT
  Age: 80 Year
  Sex: Male

DRUGS (2)
  1. ZYTIGA [Suspect]
     Active Substance: ABIRATERONE ACETATE
  2. XTANDI [Suspect]
     Active Substance: ENZALUTAMIDE

REACTIONS (2)
  - Hepatic enzyme increased [None]
  - Therapy cessation [None]
